FAERS Safety Report 13900422 (Version 1)
Quarter: 2017Q3

REPORT INFORMATION
  Report Type: Spontaneous
  Country: US (occurrence: US)
  Receive Date: 20170824
  Receipt Date: 20170824
  Transmission Date: 20171127
  Serious: No
  Sender: FDA-Public Use
  Company Number: US-009507513-1708USA010580

PATIENT
  Age: 71 Year
  Sex: Female

DRUGS (3)
  1. METFORMIN [Concomitant]
     Active Substance: METFORMIN HYDROCHLORIDE
     Indication: GLYCOSYLATED HAEMOGLOBIN INCREASED
  2. HYDROCORTONE [Suspect]
     Active Substance: HYDROCORTISONE
     Indication: HORMONE REPLACEMENT THERAPY
     Dosage: UNK
  3. MIFEPRISTONE [Concomitant]
     Active Substance: MIFEPRISTONE
     Dosage: 300 MG, DAILY

REACTIONS (1)
  - Drug ineffective [Unknown]
